FAERS Safety Report 12769138 (Version 1)
Quarter: 2016Q3

REPORT INFORMATION
  Report Type: Spontaneous
  Country: JP (occurrence: JP)
  Receive Date: 20160921
  Receipt Date: 20160921
  Transmission Date: 20161109
  Serious: Yes (Other)
  Sender: FDA-Public Use
  Company Number: JP-MALLINCKRODT-T201604446

PATIENT
  Age: 64 Year
  Sex: Female
  Weight: 63 kg

DRUGS (36)
  1. METHADONE [Suspect]
     Active Substance: METHADONE HYDROCHLORIDE
     Indication: CANCER PAIN
     Dosage: 2.5 MG (5 MG DAILY DOSE)
     Route: 048
     Dates: start: 20140130, end: 20140202
  2. METHADONE [Suspect]
     Active Substance: METHADONE HYDROCHLORIDE
     Dosage: 5 MG (15 MG DAILY DOSE)
     Route: 048
     Dates: start: 20140203, end: 20140212
  3. OXINORM [Concomitant]
     Active Substance: OXYCODONE HYDROCHLORIDE
     Indication: ANALGESIC THERAPY
     Dosage: 5 MG, PRN
     Route: 048
     Dates: start: 20140129
  4. LYRICA [Concomitant]
     Active Substance: PREGABALIN
     Indication: ANALGESIC THERAPY
     Dosage: 25 MG
     Route: 048
     Dates: end: 20140203
  5. RINDERON V [Concomitant]
     Active Substance: BETAMETHASONE VALERATE
     Dosage: 1 MG
     Route: 048
     Dates: start: 20140131, end: 20140223
  6. ZYPREXA [Concomitant]
     Active Substance: OLANZAPINE
     Dosage: 2 MG
     Route: 048
     Dates: start: 20140203, end: 20140211
  7. METHYCOBAL [Concomitant]
     Active Substance: METHYLCOBALAMIN
     Dosage: 300 MCG
     Route: 048
     Dates: start: 20140204, end: 20140212
  8. MEXITIL [Concomitant]
     Active Substance: MEXILETINE HYDROCHLORIDE
     Dosage: 250 MG
     Route: 048
     Dates: start: 20140205, end: 20140217
  9. DOGMATYL [Concomitant]
     Active Substance: SULPIRIDE
     Dosage: 30 MG
     Route: 048
     Dates: start: 20140307
  10. AMOXAN [Concomitant]
     Active Substance: AMOXAPINE
     Dosage: 10 MG
     Route: 048
     Dates: start: 20140212
  11. TRANSAMIN [Concomitant]
     Active Substance: TRANEXAMIC ACID
     Dosage: 5 ML
     Route: 051
     Dates: end: 20140130
  12. OXYCONTIN [Concomitant]
     Active Substance: OXYCODONE HYDROCHLORIDE
     Dosage: 30 MG, 10 MG
     Route: 048
     Dates: start: 20140131, end: 20140202
  13. RISPERDAL [Concomitant]
     Active Substance: RISPERIDONE
     Dosage: 0.5 MG
     Route: 048
     Dates: end: 20140219
  14. ALLOID G [Concomitant]
     Active Substance: SODIUM ALGINATE
     Dosage: 60 ML
     Route: 048
     Dates: end: 20140204
  15. RIZE [Concomitant]
     Active Substance: CLOTIAZEPAM
     Dosage: 10 MG
     Route: 048
     Dates: start: 20140225, end: 20140304
  16. METHADONE [Suspect]
     Active Substance: METHADONE HYDROCHLORIDE
     Dosage: 20 MG DAILY DOSE
     Route: 048
     Dates: start: 20140213
  17. OXYCONTIN [Concomitant]
     Active Substance: OXYCODONE HYDROCHLORIDE
     Dosage: 15 MG, 5 MG
     Route: 048
     Dates: start: 20140203, end: 20140210
  18. PURSENNID [Concomitant]
     Active Substance: SENNOSIDES A AND B
     Dosage: 12 MG
     Route: 048
  19. ZYPREXA [Concomitant]
     Active Substance: OLANZAPINE
     Dosage: 2.5 MG
     Route: 048
     Dates: start: 20140212
  20. DECADRON [Concomitant]
     Active Substance: DEXAMETHASONE
     Indication: ANALGESIC THERAPY
     Dosage: 5 ML
     Route: 051
     Dates: end: 20140130
  21. RIZE [Concomitant]
     Active Substance: CLOTIAZEPAM
     Dosage: 5 MG
     Route: 048
     Dates: start: 20140217, end: 20140224
  22. MYSLEE [Concomitant]
     Active Substance: ZOLPIDEM TARTRATE
     Dosage: 10 MG
     Route: 048
     Dates: start: 20140313, end: 20140323
  23. POSTERISAN [Concomitant]
     Active Substance: LIDOCAINE
     Dosage: UNK
     Route: 061
     Dates: start: 20140406
  24. PROMAC [Concomitant]
     Active Substance: NITROFURANTOIN
     Dosage: 150 MG
     Route: 048
  25. CALONAL [Concomitant]
     Active Substance: ACETAMINOPHEN
     Indication: ANALGESIC THERAPY
     Dosage: 1500 MG
     Route: 048
     Dates: start: 20140226
  26. AMOBAN [Concomitant]
     Active Substance: ZOPICLONE
     Dosage: 7.5 MG
     Route: 048
     Dates: start: 20140313, end: 20140323
  27. TSUMURA GOSHAJINKIGAN [Concomitant]
     Active Substance: HERBALS
     Dosage: 7.5 G
     Route: 048
     Dates: start: 20140201, end: 20140203
  28. CAPSICUM [Concomitant]
     Active Substance: CAPSICUM
     Dosage: UNK
     Route: 061
     Dates: start: 20140210, end: 20140220
  29. TRAVELMIN [Concomitant]
     Active Substance: DIMENHYDRINATE
     Dosage: 3 DF
     Route: 048
     Dates: start: 20140303, end: 20140304
  30. OXYCONTIN [Concomitant]
     Active Substance: OXYCODONE HYDROCHLORIDE
     Indication: ANALGESIC THERAPY
     Dosage: 40 MG, 20 MG
     Route: 048
     Dates: end: 20140130
  31. MAGMITT [Concomitant]
     Active Substance: MAGNESIUM OXIDE
     Dosage: 1500 MG
     Route: 048
  32. RIZE [Concomitant]
     Active Substance: CLOTIAZEPAM
     Dosage: 7.5 MG
     Route: 048
     Dates: start: 20140305
  33. BAKTAR [Concomitant]
     Active Substance: SULFAMETHOXAZOLE\TRIMETHOPRIM
     Dosage: 1 DF
     Route: 048
     Dates: start: 20140221
  34. VOLTAREN [Concomitant]
     Active Substance: DICLOFENAC SODIUM
     Indication: ANALGESIC THERAPY
     Dosage: 25 MG, PRN
     Route: 054
     Dates: start: 20140202
  35. RINDERON V [Concomitant]
     Active Substance: BETAMETHASONE VALERATE
     Dosage: 1.5 MG
     Route: 048
     Dates: start: 20140224
  36. TSUMURA SAIKOKARYUKOTSUBOREITO [Concomitant]
     Dosage: 7.5 G
     Route: 048
     Dates: start: 20140201, end: 20140212

REACTIONS (2)
  - Pneumonia [Recovered/Resolved]
  - Diarrhoea [Recovered/Resolved]

NARRATIVE: CASE EVENT DATE: 20140218
